FAERS Safety Report 5844417-7 (Version None)
Quarter: 2008Q3

REPORT INFORMATION
  Report Type: 
  Country: None (occurrence: None)
  Receive Date: 20080808
  Receipt Date: 20080728
  Transmission Date: 20090109
  Serious: No
  Sender: FDA-Public Use
  Company Number: 1-16454670

PATIENT
  Age: 10 Year
  Sex: Female

DRUGS (3)
  1. CARBAMAZEPINE [Suspect]
     Indication: EPILEPSY
     Dosage: ORAL
     Route: 048
  2. INTRAVENOUS IMMUNOGLOBULIN (IVIG) [Suspect]
     Dosage: 2G/KG, ONCE; INTRAVENOUS
     Route: 042
  3. PREDNISOLONE [Suspect]
     Dosage: 2 MG/KG/DAY,

REACTIONS (17)
  - ANTICONVULSANT DRUG LEVEL ABOVE THERAPEUTIC [None]
  - BLOOD ALKALINE PHOSPHATASE INCREASED [None]
  - BLOOD PRESSURE DIASTOLIC DECREASED [None]
  - CONJUNCTIVITIS [None]
  - DRUG HYPERSENSITIVITY [None]
  - HEART RATE INCREASED [None]
  - INFUSION RELATED REACTION [None]
  - LIVER TENDERNESS [None]
  - LYMPHADENITIS [None]
  - NEUTROPHILIA [None]
  - PYREXIA [None]
  - SKIN DISORDER [None]
  - STAPHYLOCOCCAL ABSCESS [None]
  - STOMATITIS [None]
  - TENDONITIS [None]
  - TRANSAMINASES INCREASED [None]
  - WEIGHT BEARING DIFFICULTY [None]
